FAERS Safety Report 6765766-4 (Version None)
Quarter: 2010Q2

REPORT INFORMATION
  Report Type: 
  Country: None (occurrence: None)
  Receive Date: 20100611
  Receipt Date: 20100608
  Transmission Date: 20101027
  Serious: Yes (Life-Threatening, Hospitalization)
  Sender: FDA-Public Use
  Company Number: PE-ASTRAZENECA-2010SE26551

PATIENT
  Age: 24 Year
  Sex: Female

DRUGS (3)
  1. SEROQUEL XR [Suspect]
     Indication: SCHIZOPHRENIA
     Route: 048
     Dates: start: 20091101, end: 20100604
  2. TOPIRAMATE [Concomitant]
     Route: 048
  3. METAMIZOL [Concomitant]
     Route: 051

REACTIONS (1)
  - AGRANULOCYTOSIS [None]
